FAERS Safety Report 16577811 (Version 1)
Quarter: 2019Q3

REPORT INFORMATION
  Report Type: Spontaneous
  Country: US (occurrence: US)
  Receive Date: 20190716
  Receipt Date: 20190716
  Transmission Date: 20191004
  Serious: Yes (Life-Threatening, Hospitalization, Other)
  Sender: FDA-Public Use
  Company Number: US-MYLANLABS-2019M1065899

PATIENT
  Age: 70 Year
  Sex: Female

DRUGS (1)
  1. AMIODARONE [Suspect]
     Active Substance: AMIODARONE
     Indication: ATRIAL FIBRILLATION
     Dosage: SEVERAL LOADING DOSES
     Route: 042

REACTIONS (4)
  - Cardiac arrest [Recovering/Resolving]
  - Pulmonary arterial hypertension [Recovering/Resolving]
  - Right ventricular failure [Recovered/Resolved]
  - Hyperthyroidism [Recovering/Resolving]
